FAERS Safety Report 5142332-8 (Version None)
Quarter: 2006Q4

REPORT INFORMATION
  Report Type: 
  Country: None (occurrence: None)
  Receive Date: 20061102
  Receipt Date: 20060818
  Transmission Date: 20070319
  Serious: Yes (Other)
  Sender: FDA-Public Use
  Company Number: CA-GLAXOSMITHKLINE-A0617359A

PATIENT
  Age: 55 Year
  Sex: Female
  Weight: 68 kg

DRUGS (2)
  1. VALTREX [Suspect]
     Dosage: 2G TWICE PER DAY
     Route: 048
     Dates: start: 20060306, end: 20060306
  2. ESTRADOT [Concomitant]
     Indication: HORMONE REPLACEMENT THERAPY

REACTIONS (4)
  - APHASIA [None]
  - DIZZINESS [None]
  - NAUSEA [None]
  - VOMITING [None]
